FAERS Safety Report 11773265 (Version 2)
Quarter: 2016Q1

REPORT INFORMATION
  Report Type: Report from Study
  Country: CA (occurrence: CA)
  Receive Date: 20151124
  Receipt Date: 20160108
  Transmission Date: 20160525
  Serious: Yes (Death, Other)
  Sender: FDA-Public Use
  Company Number: CA-BAYER-2015-465472

PATIENT
  Age: 79 Year
  Sex: Male

DRUGS (1)
  1. STIVARGA [Suspect]
     Active Substance: REGORAFENIB
     Indication: COLORECTAL CANCER METASTATIC
     Dosage: 80 MG, QD (TABLET)
     Route: 048
     Dates: start: 20151030, end: 2015

REACTIONS (3)
  - Heart rate increased [Unknown]
  - Gout [Unknown]
  - Death [Fatal]

NARRATIVE: CASE EVENT DATE: 2015
